FAERS Safety Report 8115677-7 (Version None)
Quarter: 2011Q4

REPORT INFORMATION
  Report Type: 
  Country: None (occurrence: None)
  Receive Date: 20111227
  Receipt Date: 20110927
  Transmission Date: 20120403
  Serious: Yes (Other)
  Sender: FDA-Public Use
  Company Number: PHEH2011US01011

PATIENT
  Age: 60 Year
  Sex: Female

DRUGS (5)
  1. CALCIUM CARBONATE [Concomitant]
  2. FISH OIL (FISH OIL) [Concomitant]
  3. ALENDRONATE SODIUM [Concomitant]
  4. GILENYA [Suspect]
     Indication: MULTIPLE SCLEROSIS
     Dosage: 0.5 MG, QD, ORAL
     Route: 048
     Dates: start: 20110721, end: 20110909
  5. BACLOFEN [Concomitant]

REACTIONS (5)
  - VISUAL IMPAIRMENT [None]
  - MACULAR OEDEMA [None]
  - BACK PAIN [None]
  - VISION BLURRED [None]
  - STARING [None]
